FAERS Safety Report 17098363 (Version 2)
Quarter: 2019Q4

REPORT INFORMATION
  Report Type: Spontaneous
  Country: US (occurrence: US)
  Receive Date: 20191202
  Receipt Date: 20191218
  Transmission Date: 20200122
  Serious: No
  Sender: FDA-Public Use
  Company Number: US-AMGEN-USASP2019198585

PATIENT
  Age: 60 Year
  Sex: Female

DRUGS (1)
  1. REPATHA [Suspect]
     Active Substance: EVOLOCUMAB
     Indication: BLOOD CHOLESTEROL ABNORMAL
     Dosage: 140 MILLIGRAM, Q2WK
     Route: 065
     Dates: start: 20191111, end: 20191111

REACTIONS (10)
  - Blood pressure abnormal [Unknown]
  - Sinusitis [Recovering/Resolving]
  - Ear discomfort [Recovering/Resolving]
  - Decreased immune responsiveness [Unknown]
  - Nausea [Unknown]
  - Ear pain [Recovering/Resolving]
  - Feeding disorder [Unknown]
  - Dizziness [Unknown]
  - Musculoskeletal pain [Unknown]
  - Insomnia [Unknown]

NARRATIVE: CASE EVENT DATE: 20191120
